FAERS Safety Report 8560203 (Version 4)
Quarter: 2013Q1

REPORT INFORMATION
  Report Type: Spontaneous
  Country: BR (occurrence: BR)
  Receive Date: 20120514
  Receipt Date: 20130131
  Transmission Date: 20140127
  Serious: Yes (Hospitalization, Other)
  Sender: FDA-Public Use
  Company Number: BR-JNJFOC-20120506559

PATIENT
  Age: 62 Year
  Sex: Female
  Weight: 35 kg

DRUGS (5)
  1. REMICADE [Suspect]
     Indication: RHEUMATOID ARTHRITIS
     Route: 042
  2. REMICADE [Suspect]
     Indication: RHEUMATOID ARTHRITIS
     Dosage: SECOND INFUSION
     Route: 042
     Dates: start: 20120123
  3. REMICADE [Suspect]
     Indication: RHEUMATOID ARTHRITIS
     Route: 042
     Dates: start: 20120315, end: 20120423
  4. PROMETHAZINE [Concomitant]
     Indication: PREMEDICATION
     Route: 030
  5. SOLUCORTEF [Concomitant]
     Indication: PREMEDICATION
     Route: 042

REACTIONS (5)
  - Tremor [Recovering/Resolving]
  - Palpitations [Recovered/Resolved]
  - Grand mal convulsion [Recovered/Resolved]
  - Infusion related reaction [Recovered/Resolved]
  - Confusional state [Recovered/Resolved]
